APPROVED DRUG PRODUCT: INTROPIN
Active Ingredient: DOPAMINE HYDROCHLORIDE
Strength: 160MG/ML
Dosage Form/Route: INJECTABLE;INJECTION
Application: N017395 | Product #003
Applicant: HOSPIRA INC
Approved: Approved Prior to Jan 1, 1982 | RLD: No | RS: No | Type: DISCN